FAERS Safety Report 6529900-3 (Version None)
Quarter: 2010Q1

REPORT INFORMATION
  Report Type: 
  Country: None (occurrence: None)
  Receive Date: 20100107
  Receipt Date: 20100104
  Transmission Date: 20100710
  Serious: Yes (Other)
  Sender: FDA-Public Use
  Company Number: B0595996A

PATIENT
  Sex: Male
  Weight: 93 kg

DRUGS (13)
  1. ROSIGLITAZONE MALEATE AND METFORMIN HCL [Suspect]
     Indication: DIABETES MELLITUS
     Route: 048
     Dates: start: 20060405, end: 20070703
  2. COMPETACT [Suspect]
     Indication: DRUG USE FOR UNKNOWN INDICATION
     Route: 048
     Dates: start: 20070802
  3. ASPIRIN [Concomitant]
     Indication: DIABETES MELLITUS
     Dosage: 75MG PER DAY
     Route: 048
     Dates: start: 20021015
  4. ATENOLOL [Concomitant]
     Indication: BLOOD PRESSURE
     Dosage: 50MG PER DAY
     Route: 048
     Dates: start: 20021210
  5. COCODAMOL [Concomitant]
     Indication: PAIN
     Route: 048
     Dates: start: 20030624
  6. FELODIPINE [Concomitant]
     Indication: BLOOD PRESSURE
     Dosage: 5MG PER DAY
     Route: 048
     Dates: start: 20041209
  7. INDAPAMIDE [Concomitant]
     Indication: BLOOD PRESSURE
     Dosage: 1.5MG PER DAY
     Route: 048
     Dates: start: 20050527
  8. HYDROXYCOBALAMIN [Concomitant]
     Dosage: 1MGML SINGLE DOSE
     Route: 030
  9. OMEPRAZOLE [Concomitant]
     Indication: GASTROOESOPHAGEAL REFLUX DISEASE
     Dosage: 10MG PER DAY
     Route: 048
     Dates: start: 20090212
  10. RAMIPRIL [Concomitant]
     Indication: BLOOD PRESSURE
     Dosage: 10MG PER DAY
     Route: 048
     Dates: start: 20040218
  11. MIRTAZAPINE [Concomitant]
     Indication: DEPRESSION
     Dosage: 30MG PER DAY
     Route: 048
     Dates: start: 20090923
  12. SIMVASTATIN [Concomitant]
     Indication: BLOOD CHOLESTEROL
     Dosage: 80MG PER DAY
     Route: 048
     Dates: start: 20091211
  13. ATORVASTATIN CALCIUM [Concomitant]
     Indication: BLOOD CHOLESTEROL
     Dosage: 40MG PER DAY
     Route: 048
     Dates: start: 20050310, end: 20091119

REACTIONS (1)
  - PERNICIOUS ANAEMIA [None]
